FAERS Safety Report 26185689 (Version 1)
Quarter: 2025Q4

REPORT INFORMATION
  Report Type: Spontaneous
  Country: US (occurrence: US)
  Receive Date: 20251222
  Receipt Date: 20251222
  Transmission Date: 20260118
  Serious: No
  Sender: CELLTRION
  Company Number: US-CELLTRION INC.-2025US016241

PATIENT

DRUGS (2)
  1. TRUXIMA [Suspect]
     Active Substance: RITUXIMAB-ABBS
     Indication: Cold type haemolytic anaemia
     Dosage: 600 MG, ONCE
     Dates: start: 20250210, end: 20250210
  2. TRUXIMA [Suspect]
     Active Substance: RITUXIMAB-ABBS
     Dosage: 375MG ONCE
     Dates: start: 20250407, end: 20250407

REACTIONS (1)
  - Off label use [Unknown]
